FAERS Safety Report 5013629-7 (Version None)
Quarter: 2006Q2

REPORT INFORMATION
  Report Type: 
  Country: None (occurrence: None)
  Receive Date: 20060525
  Receipt Date: 20060518
  Transmission Date: 20061013
  Serious: Yes (Death)
  Sender: FDA-Public Use
  Company Number: HQWYE410019MAY06

PATIENT
  Age: 44 Year
  Sex: Male

DRUGS (2)
  1. EFFEXOR [Suspect]
     Indication: DEPRESSION
  2. CARDIAC THERAPY (CARDIAC THERAPY,) [Suspect]
     Dosage: OVERDOSE AMOUNT
     Dates: start: 20050101, end: 20050101

REACTIONS (4)
  - COMPLETED SUICIDE [None]
  - DRUG INTERACTION POTENTIATION [None]
  - DRUG TOXICITY [None]
  - MULTIPLE DRUG OVERDOSE INTENTIONAL [None]
